FAERS Safety Report 6466173-4 (Version None)
Quarter: 2009Q4

REPORT INFORMATION
  Report Type: 
  Country: None (occurrence: None)
  Receive Date: 20091201
  Receipt Date: 20091201
  Transmission Date: 20100525
  Serious: Yes (Disabling, Other)
  Sender: FDA-Public Use
  Company Number: None

PATIENT
  Sex: Female
  Weight: 79.3795 kg

DRUGS (3)
  1. PAXIL [Suspect]
     Indication: BIPOLAR DISORDER
     Dates: start: 19980101, end: 20000801
  2. PAXIL [Suspect]
     Indication: DISEASE RECURRENCE
     Dates: start: 19980101, end: 20000801
  3. PAXIL [Suspect]
     Indication: MAJOR DEPRESSION
     Dates: start: 19980101, end: 20000801

REACTIONS (2)
  - HEADACHE [None]
  - MASS [None]
